FAERS Safety Report 25832233 (Version 1)
Quarter: 2025Q3

REPORT INFORMATION
  Report Type: Spontaneous
  Country: US (occurrence: None)
  Receive Date: 20250922
  Receipt Date: 20250922
  Transmission Date: 20251021
  Serious: No
  Sender: FDA-CTU
  Company Number: None

PATIENT
  Age: 33 Year
  Sex: Female
  Weight: 101.25 kg

DRUGS (7)
  1. REZDIFFRA [Suspect]
     Active Substance: RESMETIROM
     Indication: Metabolic dysfunction-associated steatohepatitis
     Dosage: OTHER QUANTITY : 1 TABLET(S);?FREQUENCY : DAILY;?
     Route: 048
     Dates: start: 20250919, end: 20250921
  2. MOUNJARO [Concomitant]
     Active Substance: TIRZEPATIDE
  3. LEVOTHYROXINE [Concomitant]
     Active Substance: LEVOTHYROXINE
  4. ROSUVASTATIN [Concomitant]
     Active Substance: ROSUVASTATIN
  5. Vestura 3-0.02 MG [Concomitant]
  6. Biotin Collagen 1000 mg [Concomitant]
  7. VITAMINS [Concomitant]
     Active Substance: VITAMINS

REACTIONS (4)
  - Diarrhoea [None]
  - Abdominal pain upper [None]
  - Abdominal discomfort [None]
  - Nausea [None]

NARRATIVE: CASE EVENT DATE: 20250921
